FAERS Safety Report 13924585 (Version 2)
Quarter: 2017Q3

REPORT INFORMATION
  Report Type: Spontaneous
  Country: IT (occurrence: IT)
  Receive Date: 20170831
  Receipt Date: 20170906
  Transmission Date: 20171127
  Serious: Yes (Other)
  Sender: FDA-Public Use
  Company Number: IT-TEVA-802333ACC

PATIENT
  Age: 38 Year
  Sex: Female

DRUGS (6)
  1. DECAPEPTYL [Concomitant]
     Active Substance: TRIPTORELIN
     Indication: OVULATION INDUCTION
     Dosage: .2 MILLIGRAM DAILY;
     Route: 065
  2. UROFOLLITROPIN [Concomitant]
     Active Substance: UROFOLLITROPIN
     Indication: OVULATION INDUCTION
     Dosage: 150 IU (INTERNATIONAL UNIT) DAILY; 150 IU/DAY
     Route: 065
  3. UROFOLLITROPIN [Concomitant]
     Active Substance: UROFOLLITROPIN
     Dosage: 187 IU (INTERNATIONAL UNIT) DAILY; 180 IU/DAY
     Route: 065
  4. LETROZOLE. [Suspect]
     Active Substance: LETROZOLE
     Indication: OVULATION INDUCTION
  5. CETRORELIX [Concomitant]
     Active Substance: CETRORELIX
     Indication: OVULATION INDUCTION
     Dosage: 0.25 MG
     Route: 065
  6. LETROZOLE. [Suspect]
     Active Substance: LETROZOLE
     Indication: INTRADUCTAL PROLIFERATIVE BREAST LESION
     Route: 065

REACTIONS (1)
  - Progesterone increased [Unknown]
